FAERS Safety Report 9276264 (Version 1)
Quarter: 2013Q2

REPORT INFORMATION
  Report Type: Spontaneous
  Country: US (occurrence: None)
  Receive Date: 20130502
  Receipt Date: 20130502
  Transmission Date: 20140414
  Serious: Yes (Life-Threatening, Hospitalization)
  Sender: FDA-Public Use
  Company Number: None

PATIENT
  Age: 35 Year
  Sex: Female
  Weight: 66.6 kg

DRUGS (3)
  1. FERRIC NA GLUCONATE [Suspect]
     Indication: PAIN
     Route: 042
     Dates: start: 20130423, end: 20130430
  2. FERRIC NA GLUCONATE [Suspect]
     Indication: MENORRHAGIA
     Route: 042
     Dates: start: 20130423, end: 20130430
  3. FERRIC NA GLUCONATE [Suspect]
     Indication: UTERINE LEIOMYOMA
     Route: 042
     Dates: start: 20130423, end: 20130430

REACTIONS (3)
  - Burning sensation [None]
  - Anaphylactic reaction [None]
  - Infusion related reaction [None]
